FAERS Safety Report 8795551 (Version 1)
Quarter: 2012Q4

REPORT INFORMATION
  Report Type: 
  Country: DE (occurrence: DE)
  Receive Date: 20120917
  Receipt Date: 20120917
  Transmission Date: 20130627
  Serious: Yes (Hospitalization, Other)
  Sender: FDA-Public Use
  Company Number: DE-JNJFOC-20120905288

PATIENT
  Sex: Female

DRUGS (1)
  1. NICORETTE [Suspect]
     Indication: PRODUCT USED FOR UNKNOWN INDICATION
     Dosage: 1 to 2 cartridges per day
     Route: 055
     Dates: start: 2011

REACTIONS (5)
  - Nicotine dependence [Not Recovered/Not Resolved]
  - Appendicitis [Unknown]
  - Incorrect drug administration duration [Not Recovered/Not Resolved]
  - Withdrawal syndrome [Recovered/Resolved]
  - Abdominal pain upper [None]
